FAERS Safety Report 6900765-0 (Version None)
Quarter: 2010Q3

REPORT INFORMATION
  Report Type: 
  Country: None (occurrence: None)
  Receive Date: 20100803
  Receipt Date: 20100730
  Transmission Date: 20110219
  Serious: Yes (Death)
  Sender: FDA-Public Use
  Company Number: DE-BRISTOL-MYERS SQUIBB COMPANY-15219827

PATIENT
  Age: 69 Year
  Sex: Female
  Weight: 80 kg

DRUGS (1)
  1. ONGLYZA [Suspect]
     Indication: TYPE 2 DIABETES MELLITUS
     Route: 048
     Dates: start: 20100621

REACTIONS (2)
  - PULMONARY EMBOLISM [None]
  - SUDDEN DEATH [None]
